FAERS Safety Report 6152686-1 (Version None)
Quarter: 2009Q2

REPORT INFORMATION
  Report Type: 
  Country: None (occurrence: None)
  Receive Date: 20090413
  Receipt Date: 20090330
  Transmission Date: 20091009
  Serious: Yes (Hospitalization, Other)
  Sender: FDA-Public Use
  Company Number: AU-ROCHE-624907

PATIENT
  Age: 55 Year
  Sex: Male

DRUGS (10)
  1. MYCOPHENOLATE MOFETIL [Suspect]
     Indication: PYODERMA GANGRENOSUM
     Route: 065
  2. CYCLOSPORINE [Concomitant]
  3. PREDNISONE [Concomitant]
  4. PREDNISONE [Concomitant]
  5. PREDNISONE [Concomitant]
  6. PREDNISONE [Concomitant]
  7. PREDNISONE [Concomitant]
  8. PREDNISONE [Concomitant]
  9. PREDNISONE [Concomitant]
  10. INSULIN [Concomitant]
     Indication: DIABETES MELLITUS

REACTIONS (8)
  - FALL [None]
  - HYPERTENSION [None]
  - MENINGITIS [None]
  - OSTEOMYELITIS [None]
  - RENAL IMPAIRMENT [None]
  - RIB FRACTURE [None]
  - SEPSIS [None]
  - SKIN ULCER [None]
